FAERS Safety Report 8490815-5 (Version None)
Quarter: 2012Q3

REPORT INFORMATION
  Report Type: 
  Country: None (occurrence: None)
  Receive Date: 20120706
  Receipt Date: 20120626
  Transmission Date: 20120928
  Serious: No
  Sender: FDA-Public Use
  Company Number: US-BIOGENIDEC-2012BI022747

PATIENT
  Sex: Female

DRUGS (1)
  1. AVONEX [Suspect]
     Indication: MULTIPLE SCLEROSIS
     Route: 030
     Dates: start: 20070810, end: 20110601

REACTIONS (7)
  - DEVICE BREAKAGE [None]
  - MENTAL IMPAIRMENT [None]
  - PROGRESSIVE MULTIPLE SCLEROSIS [None]
  - MUSCLE RIGIDITY [None]
  - DEPRESSED MOOD [None]
  - MUSCULOSKELETAL STIFFNESS [None]
  - MUSCLE SPASMS [None]
